FAERS Safety Report 4604300-1 (Version None)
Quarter: 2005Q1

REPORT INFORMATION
  Report Type: 
  Country: None (occurrence: None)
  Receive Date: 20050310
  Receipt Date: 20041025
  Transmission Date: 20050727
  Serious: Yes (Death)
  Sender: FDA-Public Use
  Company Number: US-ABBOTT-04P-163-0279313-00

PATIENT
  Age: 33 Year

DRUGS (2)
  1. VALPROIC ACID (LONG ACTING) [Suspect]
     Indication: DRUG USE FOR UNKNOWN INDICATION
     Route: 048
  2. CARBAMAZEPINE [Suspect]
     Indication: DRUG USE FOR UNKNOWN INDICATION
     Route: 048

REACTIONS (2)
  - COMPLETED SUICIDE [None]
  - INTENTIONAL MISUSE [None]
